FAERS Safety Report 19798204 (Version 1)
Quarter: 2021Q3

REPORT INFORMATION
  Report Type: Spontaneous
  Country: US (occurrence: US)
  Receive Date: 20210902
  Receipt Date: 20210902
  Transmission Date: 20211014
  Serious: Yes (Hospitalization)
  Sender: FDA-Public Use
  Company Number: None

PATIENT
  Age: 77 Year
  Sex: Male

DRUGS (9)
  1. ESOMEPRA MGA DR [Concomitant]
  2. XELJANZ XR [Suspect]
     Active Substance: TOFACITINIB CITRATE
     Indication: RHEUMATOID ARTHRITIS
     Route: 048
     Dates: start: 20190328
  3. TAMSULOSIN [Concomitant]
     Active Substance: TAMSULOSIN
  4. PREGABALIN. [Concomitant]
     Active Substance: PREGABALIN
  5. TRIAMCINOLON CRE [Concomitant]
  6. DIAZEPAM. [Concomitant]
     Active Substance: DIAZEPAM
  7. ELIQUIS [Concomitant]
     Active Substance: APIXABAN
  8. OXYCODONE AND ACETAMINOPHEN [Concomitant]
     Active Substance: ACETAMINOPHEN\OXYCODONE HYDROCHLORIDE
  9. ROSUVASTATIN. [Concomitant]
     Active Substance: ROSUVASTATIN

REACTIONS (2)
  - Neck surgery [None]
  - Spinal operation [None]

NARRATIVE: CASE EVENT DATE: 20210331
